FAERS Safety Report 8466537-3 (Version None)
Quarter: 2012Q2

REPORT INFORMATION
  Report Type: 
  Country: None (occurrence: None)
  Receive Date: 20120619
  Receipt Date: 20120615
  Transmission Date: 20120825
  Serious: Yes (Hospitalization, Other)
  Sender: FDA-Public Use
  Company Number: ADR-2009-6973

PATIENT
  Sex: Male

DRUGS (1)
  1. LIORESAL [Suspect]
     Indication: MUSCLE SPASTICITY
     Dosage: 475 MCG, DAILY, INTRATH
     Route: 037

REACTIONS (9)
  - CONDITION AGGRAVATED [None]
  - PERFORMANCE STATUS DECREASED [None]
  - URINARY TRACT INFECTION [None]
  - ENTEROCOCCUS TEST POSITIVE [None]
  - ASTHENIA [None]
  - MUSCLE SPASTICITY [None]
  - ABASIA [None]
  - INTERVERTEBRAL DISCITIS [None]
  - HYPERSENSITIVITY [None]
